FAERS Safety Report 19506804 (Version 2)
Quarter: 2021Q3

REPORT INFORMATION
  Report Type: Report from Study
  Country: CO (occurrence: CO)
  Receive Date: 20210708
  Receipt Date: 20210721
  Transmission Date: 20211014
  Serious: Yes (Other)
  Sender: FDA-Public Use
  Company Number: CO-REGENERON PHARMACEUTICALS, INC.-2021-66299

PATIENT

DRUGS (1)
  1. EYLEA [Suspect]
     Active Substance: AFLIBERCEPT
     Indication: RETINAL VEIN OCCLUSION
     Dosage: 2 MG, Q1MON
     Route: 031
     Dates: start: 20210318

REACTIONS (2)
  - Inappropriate schedule of product administration [Not Recovered/Not Resolved]
  - Laser therapy [Unknown]

NARRATIVE: CASE EVENT DATE: 202103
